FAERS Safety Report 25835168 (Version 2)
Quarter: 2025Q4

REPORT INFORMATION
  Report Type: Spontaneous
  Country: EU (occurrence: EU)
  Receive Date: 20250923
  Receipt Date: 20251211
  Transmission Date: 20260117
  Serious: Yes (Other)
  Sender: RANBAXY
  Company Number: EU-AEMPS-1691566

PATIENT
  Age: 62 Year
  Sex: Female

DRUGS (1)
  1. HYDROCHLOROTHIAZIDE\RAMIPRIL [Suspect]
     Active Substance: HYDROCHLOROTHIAZIDE\RAMIPRIL
     Indication: Hypertension
     Dosage: 1 DOSAGE FORM, DAILY, 1 TABLET EVERY 24 HOURS
     Route: 048
     Dates: start: 20200221, end: 20240213

REACTIONS (2)
  - Hyperamylasaemia [Recovering/Resolving]
  - Hyperlipasaemia [Recovering/Resolving]

NARRATIVE: CASE EVENT DATE: 20240131
